FAERS Safety Report 9028320 (Version 2)
Quarter: 2014Q1

REPORT INFORMATION
  Report Type: Spontaneous
  Country: US (occurrence: US)
  Receive Date: 20130124
  Receipt Date: 20140122
  Transmission Date: 20141002
  Serious: No
  Sender: FDA-Public Use
  Company Number: US-BAUSCH-BL-2012-001957

PATIENT
  Sex: Female

DRUGS (3)
  1. ALAWAY (KETOTIFEN FUMARATE OPHTHALMIC SOLUTION) [Suspect]
     Indication: EYE PRURITUS
     Dosage: ONE DROP IN EACH EYE TWICE DAILY
     Route: 047
     Dates: start: 201211, end: 201211
  2. ALAWAY (KETOTIFEN FUMARATE OPHTHALMIC SOLUTION) [Suspect]
     Indication: OCULAR HYPERAEMIA
  3. ALAWAY (KETOTIFEN FUMARATE OPHTHALMIC SOLUTION) [Suspect]
     Indication: OFF LABEL USE

REACTIONS (1)
  - Drug ineffective [Not Recovered/Not Resolved]
